FAERS Safety Report 4698570-1 (Version None)
Quarter: 2005Q2

REPORT INFORMATION
  Report Type: 
  Country: None (occurrence: None)
  Receive Date: 20050622
  Receipt Date: 20050601
  Transmission Date: 20051028
  Serious: Yes (Hospitalization)
  Sender: FDA-Public Use
  Company Number: 2005001022

PATIENT
  Age: 72 Year
  Sex: Male

DRUGS (9)
  1. TARCEVA [Suspect]
     Indication: NON-SMALL CELL LUNG CANCER
     Dosage: 150 MG (QD); ORAL
     Route: 048
     Dates: start: 20050418, end: 20050515
  2. ATENOLOL [Concomitant]
  3. MONOPRIL [Concomitant]
  4. GLUCOTROL [Concomitant]
  5. GLUCOTROL [Concomitant]
  6. HYDROCHLOROTHIAZIDE [Concomitant]
  7. GLUCOPAGE (METFORMIN HYDROCHLORIDE) [Concomitant]
  8. LIPITOR [Concomitant]
  9. LEVAQUIN [Concomitant]

REACTIONS (1)
  - PNEUMOTHORAX [None]
